FAERS Safety Report 19905969 (Version 1)
Quarter: 2021Q3

REPORT INFORMATION
  Report Type: Spontaneous
  Country: BD (occurrence: BD)
  Receive Date: 20210930
  Receipt Date: 20210930
  Transmission Date: 20211014
  Serious: No
  Sender: FDA-Public Use
  Company Number: BD-LUPIN PHARMACEUTICALS INC.-2021-18314

PATIENT
  Sex: Male

DRUGS (10)
  1. MOXIFLOXACIN HYDROCHLORIDE. [Suspect]
     Active Substance: MOXIFLOXACIN HYDROCHLORIDE
     Indication: COVID-19
     Dosage: 400 MILLIGRAM, QD (TABLET)
     Route: 048
     Dates: start: 2020, end: 2020
  2. AMOXICILLIN/CLAVULANIC ACID [Suspect]
     Active Substance: AMOXICILLIN\CLAVULANIC ACID
     Indication: COVID-19
     Dosage: 625 MILLIGRAM, TID
     Route: 048
     Dates: start: 2020, end: 2020
  3. PREDNISOLONE. [Suspect]
     Active Substance: PREDNISOLONE
     Indication: COVID-19
     Dosage: 16 MILLIGRAM, QD
     Route: 048
     Dates: start: 2020, end: 2020
  4. ZINC. [Suspect]
     Active Substance: ZINC
     Indication: MINERAL SUPPLEMENTATION
     Dosage: 1 DOSAGE FORM, BID
     Route: 048
     Dates: start: 2020, end: 2020
  5. ZINC. [Suspect]
     Active Substance: ZINC
     Indication: COVID-19
  6. IVERMECTIN. [Suspect]
     Active Substance: IVERMECTIN
     Indication: COVID-19
     Dosage: 6 MILLIGRAM, BID
     Route: 048
     Dates: start: 2020, end: 2020
  7. FAVIPIRAVIR [Suspect]
     Active Substance: FAVIPIRAVIR
     Dosage: 600 MILLIGRAM, BID
     Route: 048
     Dates: start: 2020, end: 2020
  8. DOXYCYCLINE. [Suspect]
     Active Substance: DOXYCYCLINE
     Indication: COVID-19
     Dosage: 100 MILLIGRAM, BID (CAPSULE)
     Route: 048
     Dates: start: 2020, end: 2020
  9. FAVIPIRAVIR [Suspect]
     Active Substance: FAVIPIRAVIR
     Indication: COVID-19
     Dosage: 1600 MILLIGRAM, BID
     Route: 048
     Dates: start: 2020, end: 2020
  10. VITAMIN D3 [Suspect]
     Active Substance: CHOLECALCIFEROL
     Indication: VITAMIN SUPPLEMENTATION
     Dosage: 1 DOSAGE FORM, QOD
     Route: 048
     Dates: start: 2020, end: 2020

REACTIONS (1)
  - Off label use [Unknown]

NARRATIVE: CASE EVENT DATE: 2020
